FAERS Safety Report 6065854-4 (Version None)
Quarter: 2009Q1

REPORT INFORMATION
  Report Type: 
  Country: None (occurrence: None)
  Receive Date: 20090205
  Receipt Date: 20090129
  Transmission Date: 20090719
  Serious: Yes (Other)
  Sender: FDA-Public Use
  Company Number: US-JNJFOC-20090200345

PATIENT
  Sex: Female
  Weight: 83.92 kg

DRUGS (5)
  1. DURAGESIC-100 [Suspect]
     Indication: BACK PAIN
     Route: 062
  2. SYNTHROID [Concomitant]
     Indication: THYROID DISORDER
     Route: 048
  3. NEXIUM [Concomitant]
     Indication: GASTROOESOPHAGEAL REFLUX DISEASE
     Route: 048
  4. SONATA [Concomitant]
     Indication: INSOMNIA
     Route: 048
  5. EFFEXOR [Concomitant]
     Indication: DEPRESSION
     Route: 048

REACTIONS (2)
  - CORONARY ARTERIAL STENT INSERTION [None]
  - INAPPROPRIATE SCHEDULE OF DRUG ADMINISTRATION [None]
